FAERS Safety Report 25767656 (Version 2)
Quarter: 2025Q4

REPORT INFORMATION
  Report Type: Report from Study
  Country: EU (occurrence: EU)
  Receive Date: 20250905
  Receipt Date: 20251003
  Transmission Date: 20260117
  Serious: Yes (Other)
  Sender: TEVA
  Company Number: EU-TEVA-VS-3368478

PATIENT
  Age: 58 Year
  Sex: Female

DRUGS (3)
  1. TERIPARATIDE [Suspect]
     Active Substance: TERIPARATIDE
     Indication: Osteoporosis
     Dosage: PEN; STRENGTH: (TETRIDAR 20 MCG/80MCL)
     Route: 065
     Dates: start: 20250620
  2. CALCIFEDIOL [Concomitant]
     Active Substance: CALCIFEDIOL
     Indication: Osteoporosis
     Dosage: START DATE: SOME TIME AGO; END DATE: CONTINUES
     Route: 065
  3. Acediur [Concomitant]
     Indication: Hypertension
     Dosage: DOSE: ONE IN THE MORNING; START DATE: SOME TIME AGO; END DATE: CONTINUES
     Route: 065

REACTIONS (14)
  - Muscle spasms [Recovered/Resolved]
  - Nausea [Recovered/Resolved]
  - Wrong technique in product usage process [Unknown]
  - Vertigo [Recovered/Resolved]
  - Pain in extremity [Recovered/Resolved]
  - Eye movement disorder [Recovered/Resolved]
  - Muscular weakness [Not Recovered/Not Resolved]
  - Tachycardia [Not Recovered/Not Resolved]
  - Fatigue [Not Recovered/Not Resolved]
  - Arthralgia [Not Recovered/Not Resolved]
  - Calcification of muscle [Unknown]
  - Product dose omission issue [Unknown]
  - Dizziness [Recovered/Resolved]
  - Dizziness [Recovered/Resolved]

NARRATIVE: CASE EVENT DATE: 20250101
